FAERS Safety Report 6150562-1 (Version None)
Quarter: 2009Q2

REPORT INFORMATION
  Report Type: 
  Country: None (occurrence: None)
  Receive Date: 20090407
  Receipt Date: 20090407
  Transmission Date: 20091009
  Serious: No
  Sender: FDA-Public Use
  Company Number: None

PATIENT

DRUGS (1)
  1. MIDAZOLAM HCL [Suspect]

REACTIONS (5)
  - AGITATION [None]
  - ANAESTHETIC COMPLICATION [None]
  - DRUG EFFECT DECREASED [None]
  - PREMATURE RECOVERY FROM ANAESTHESIA [None]
  - PRODUCT QUALITY ISSUE [None]
